FAERS Safety Report 18158190 (Version 4)
Quarter: 2020Q4

REPORT INFORMATION
  Report Type: Spontaneous
  Country: CZ (occurrence: CZ)
  Receive Date: 20200817
  Receipt Date: 20201203
  Transmission Date: 20210113
  Serious: Yes (Other)
  Sender: FDA-Public Use
  Company Number: NVSC2020CZ225820

PATIENT
  Age: 62 Year
  Sex: Male
  Weight: 125 kg

DRUGS (20)
  1. DICLOFENAC [Suspect]
     Active Substance: DICLOFENAC
     Dosage: 200 MG, QW (AT A DOSE OF 100?200 MG/WEEK)
     Route: 065
  2. MACROGOL [Suspect]
     Active Substance: POLYETHYLENE GLYCOLS
     Indication: CONSTIPATION
     Dosage: 4000 SOMETIMES (1-2 TIMES PER WEEK)
     Route: 065
  3. SODIUM PICOSULFATE [Concomitant]
     Active Substance: SODIUM PICOSULFATE
     Indication: PRODUCT USED FOR UNKNOWN INDICATION
     Dosage: UNK
     Route: 065
  4. TRAMADOL HYDROCHLORIDE. [Suspect]
     Active Substance: TRAMADOL HYDROCHLORIDE
     Indication: PAIN
     Dosage: 500 MILLIGRAM, 1/DAY
     Route: 065
  5. DICLOFENAC [Suspect]
     Active Substance: DICLOFENAC
     Indication: PAIN
     Dosage: 100 MG, QW (AT A DOSE OF 100?200 MG/WEEK)
     Route: 065
  6. TAPENTADOL [Suspect]
     Active Substance: TAPENTADOL
     Dosage: 400 MILLIGRAM, 2/DAY
     Route: 065
  7. MACROGOL [Suspect]
     Active Substance: POLYETHYLENE GLYCOLS
     Dosage: ONCE TO TWICE A WEEK
     Route: 065
  8. BISACODYL. [Concomitant]
     Active Substance: BISACODYL
     Indication: CONSTIPATION
     Dosage: 1-2 TIMES PER WEEK
     Route: 065
  9. SODIUM BISULFITE. [Concomitant]
     Active Substance: SODIUM BISULFITE
     Dosage: 10 MG OR 20 DROPS IN THE EVENING
     Route: 065
  10. TAPENTADOL [Suspect]
     Active Substance: TAPENTADOL
     Indication: PAIN
     Dosage: 200 MG TWICE DAILY
     Route: 065
  11. PARACETAMOL [Concomitant]
     Active Substance: ACETAMINOPHEN
     Indication: PRODUCT USED FOR UNKNOWN INDICATION
     Dosage: UNK
     Route: 065
  12. NALOXEGOL OXALATE. [Concomitant]
     Active Substance: NALOXEGOL OXALATE
     Indication: PRODUCT USED FOR UNKNOWN INDICATION
     Dosage: 25 MILLIGRAM, 1/DAY
     Route: 065
  13. PARACETAMOL,TRAMADOL HYDROCHLORIDE [Suspect]
     Active Substance: ACETAMINOPHEN\TRAMADOL HYDROCHLORIDE
     Indication: PAIN
     Dosage: 225 MG TRAMADOL / DAY
     Route: 065
  14. NALOXONE,OXYCODONE [Suspect]
     Active Substance: NALOXONE HYDROCHLORIDE\OXYCODONE HYDROCHLORIDE
     Indication: PAIN
     Dosage: UNK
     Route: 065
  15. LACTULOSE. [Suspect]
     Active Substance: LACTULOSE
     Indication: CONSTIPATION
     Dosage: UP TO NINE TABLESPOONS DIVIDED INTO THREE DOSES DAILY, AND ONCE TO TWICE A WEEK
     Route: 065
  16. TRAZODONE [Suspect]
     Active Substance: TRAZODONE HYDROCHLORIDE
     Indication: ANTIDEPRESSANT THERAPY
     Dosage: UNK
     Route: 065
  17. CITALOPRAM [Suspect]
     Active Substance: CITALOPRAM HYDROBROMIDE
     Indication: ANTIDEPRESSANT THERAPY
     Dosage: UNK
     Route: 065
  18. TRAMADOL HYDROCHLORIDE. [Suspect]
     Active Substance: TRAMADOL HYDROCHLORIDE
     Indication: ANALGESIC THERAPY
  19. TRAZODONE [Suspect]
     Active Substance: TRAZODONE HYDROCHLORIDE
     Indication: DEPRESSION
     Route: 065
  20. SODIUM BISULFITE. [Concomitant]
     Active Substance: SODIUM BISULFITE
     Indication: CONSTIPATION
     Dosage: 20 DROP, AS NEEDED
     Route: 065

REACTIONS (10)
  - Condition aggravated [Unknown]
  - Constipation [Recovered/Resolved]
  - Abdominal distension [Unknown]
  - Intentional overdose [Unknown]
  - Flatulence [Unknown]
  - Drug ineffective [Unknown]
  - Vomiting [Unknown]
  - Functional gastrointestinal disorder [Recovering/Resolving]
  - Quality of life decreased [Recovering/Resolving]
  - Abdominal pain [Unknown]
